FAERS Safety Report 8274792-8 (Version None)
Quarter: 2012Q2

REPORT INFORMATION
  Report Type: 
  Country: None (occurrence: None)
  Receive Date: 20120411
  Receipt Date: 20120404
  Transmission Date: 20120825
  Serious: Yes (Other)
  Sender: FDA-Public Use
  Company Number: CH-BAYER-2012-032475

PATIENT
  Sex: Female

DRUGS (1)
  1. CIPROFLOXACIN HCL [Suspect]
     Indication: URINARY TRACT INFECTION
     Dosage: 500 MG, BID
     Route: 048
     Dates: start: 20120115, end: 20120119

REACTIONS (5)
  - FACE OEDEMA [None]
  - DEPRESSION [None]
  - VISUAL IMPAIRMENT [None]
  - BONE PAIN [None]
  - HEADACHE [None]
